FAERS Safety Report 10048809 (Version 2)
Quarter: 2014Q3

REPORT INFORMATION
  Report Type: Spontaneous
  Country: VE (occurrence: VE)
  Receive Date: 20140331
  Receipt Date: 20140901
  Transmission Date: 20150326
  Serious: Yes (Other)
  Sender: FDA-Public Use
  Company Number: PHHY2014VE038441

PATIENT
  Age: 24 Year
  Sex: Female

DRUGS (3)
  1. TOBI [Suspect]
     Active Substance: TOBRAMYCIN
     Indication: CYSTIC FIBROSIS
     Route: 055
  2. TOBI PODHALER [Suspect]
     Active Substance: TOBRAMYCIN
  3. ANTIBIOTICS [Suspect]
     Active Substance: UNSPECIFIED INGREDIENT
     Indication: RESPIRATORY TRACT INFECTION
     Route: 042

REACTIONS (12)
  - Maternal exposure during pregnancy [Unknown]
  - Disease recurrence [None]
  - Respiratory tract infection [None]
  - Normal newborn [Unknown]
  - Exposure during breast feeding [Unknown]
  - Threatened labour [None]
  - Caesarean section [None]
  - Treatment noncompliance [None]
  - Bronchial obstruction [None]
  - Pregnancy [None]
  - Cardio-respiratory arrest [None]
  - Lung disorder [Recovered/Resolved]

NARRATIVE: CASE EVENT DATE: 200902
